FAERS Safety Report 5105800-0 (Version None)
Quarter: 2006Q3

REPORT INFORMATION
  Report Type: 
  Country: None (occurrence: None)
  Receive Date: 20060915
  Receipt Date: 20060905
  Transmission Date: 20061208
  Serious: Yes (Hospitalization)
  Sender: FDA-Public Use
  Company Number: GB-ROCHE-462872

PATIENT
  Age: 53 Year
  Sex: Female
  Weight: 97.1 kg

DRUGS (5)
  1. XENICAL [Suspect]
     Indication: OBESITY
     Route: 048
     Dates: start: 20060703, end: 20060829
  2. THYROXINE [Concomitant]
     Route: 048
  3. METHOTREXATE [Concomitant]
     Route: 048
  4. HYDROXYCHLOROQUINE SULFATE [Concomitant]
     Route: 048
  5. ASPIRIN [Concomitant]
     Route: 048

REACTIONS (1)
  - DIVERTICULITIS [None]
